FAERS Safety Report 5880002-9 (Version None)
Quarter: 2008Q3

REPORT INFORMATION
  Report Type: 
  Country: None (occurrence: None)
  Receive Date: 20080910
  Receipt Date: 20080910
  Transmission Date: 20090109
  Serious: Yes (Other)
  Sender: FDA-Public Use
  Company Number: None

PATIENT
  Sex: Female
  Weight: 68.0396 kg

DRUGS (1)
  1. CIPROFLOXACIN [Suspect]
     Indication: URINARY TRACT INFECTION
     Dosage: 500 MG 2 PO
     Route: 048
     Dates: start: 20080907, end: 20080909

REACTIONS (4)
  - ANXIETY [None]
  - DEPRESSION [None]
  - PARANOIA [None]
  - SELF-INJURIOUS IDEATION [None]
